FAERS Safety Report 10207505 (Version 1)
Quarter: 2014Q2

REPORT INFORMATION
  Report Type: Spontaneous
  Country: US (occurrence: None)
  Receive Date: 20140527
  Receipt Date: 20140527
  Transmission Date: 20141212
  Serious: No
  Sender: FDA-Public Use
  Company Number: None

PATIENT
  Age: 59 Year
  Sex: Female

DRUGS (3)
  1. AZITHROMYCIN [Suspect]
     Dates: start: 20111128, end: 20111202
  2. CEFACLOR [Suspect]
     Dates: start: 20111213, end: 20111222
  3. MACROBID [Suspect]
     Dates: end: 20120124

REACTIONS (4)
  - Drug-induced liver injury [None]
  - Respiratory tract infection [None]
  - Exfoliative rash [None]
  - Hepatic necrosis [None]
